FAERS Safety Report 22299039 (Version 1)
Quarter: 2023Q2

REPORT INFORMATION
  Report Type: Spontaneous
  Country: GB (occurrence: GB)
  Receive Date: 20230509
  Receipt Date: 20230509
  Transmission Date: 20230721
  Serious: Yes (Other)
  Sender: FDA-Public Use
  Company Number: GB-BAYER-2023A060160

PATIENT
  Age: 26 Year
  Sex: Female

DRUGS (2)
  1. REGORAFENIB [Suspect]
     Active Substance: REGORAFENIB
     Indication: Osteosarcoma metastatic
     Dosage: 160 MG/DAY
  2. REGORAFENIB [Suspect]
     Active Substance: REGORAFENIB
     Indication: Osteosarcoma metastatic
     Dosage: 120 MG

REACTIONS (4)
  - Palmar-plantar erythrodysaesthesia syndrome [None]
  - Diarrhoea [None]
  - Pleural effusion [None]
  - Off label use [None]

NARRATIVE: CASE EVENT DATE: 20220801
